FAERS Safety Report 13591207 (Version 2)
Quarter: 2017Q4

REPORT INFORMATION
  Report Type: Report from Study
  Country: AR (occurrence: AR)
  Receive Date: 20170530
  Receipt Date: 20171110
  Transmission Date: 20180320
  Serious: Yes (Other)
  Sender: FDA-Public Use
  Company Number: AR-EMD SERONO-E2B_80069609

PATIENT
  Sex: Male

DRUGS (2)
  1. SAIZEN [Suspect]
     Active Substance: SOMATROPIN
     Indication: GROWTH HORMONE DEFICIENCY
     Route: 058
     Dates: start: 20150213, end: 201702
  2. SAIZEN [Suspect]
     Active Substance: SOMATROPIN
     Dosage: RESTARTED
     Route: 058

REACTIONS (2)
  - Drug dose omission [Unknown]
  - Brain neoplasm benign [Unknown]
